FAERS Safety Report 21905733 (Version 1)
Quarter: 2023Q1

REPORT INFORMATION
  Report Type: Report from Study
  Country: RO (occurrence: RO)
  Receive Date: 20230124
  Receipt Date: 20230124
  Transmission Date: 20230417
  Serious: Yes (Disabling)
  Sender: FDA-Public Use
  Company Number: RO-UCBSA-2023002107

PATIENT
  Age: 8 Year
  Sex: Female
  Weight: 52 kg

DRUGS (1)
  1. BRIVARACETAM [Suspect]
     Active Substance: BRIVARACETAM
     Indication: Juvenile absence epilepsy
     Dosage: 9.2 MILLILITER, 2X/DAY (BID)
     Route: 048
     Dates: start: 20221011

REACTIONS (6)
  - Anxiety [Recovering/Resolving]
  - Communication disorder [Recovering/Resolving]
  - Irritability [Recovering/Resolving]
  - Insomnia [Recovering/Resolving]
  - Somnolence [Recovering/Resolving]
  - Communication disorder [Recovering/Resolving]

NARRATIVE: CASE EVENT DATE: 20230110
